FAERS Safety Report 5911463-4 (Version None)
Quarter: 2008Q4

REPORT INFORMATION
  Report Type: 
  Country: None (occurrence: None)
  Receive Date: 20081002
  Receipt Date: 20080918
  Transmission Date: 20090506
  Serious: Yes (Other)
  Sender: FDA-Public Use
  Company Number: 2008S1015872

PATIENT
  Age: 60 Year
  Sex: Female

DRUGS (9)
  1. ZITHROMAX [Suspect]
     Indication: BRONCHITIS
     Dosage: 500 MG; DAILY; ORAL, 250 MG; DAILY; ORAL
     Route: 048
     Dates: start: 20080807, end: 20080807
  2. ZITHROMAX [Suspect]
     Indication: UPPER RESPIRATORY TRACT INFECTION
     Dosage: 500 MG; DAILY; ORAL, 250 MG; DAILY; ORAL
     Route: 048
     Dates: start: 20080807, end: 20080807
  3. ZITHROMAX [Suspect]
     Indication: BRONCHITIS
     Dosage: 500 MG; DAILY; ORAL, 250 MG; DAILY; ORAL
     Route: 048
     Dates: start: 20080808
  4. ZITHROMAX [Suspect]
     Indication: UPPER RESPIRATORY TRACT INFECTION
     Dosage: 500 MG; DAILY; ORAL, 250 MG; DAILY; ORAL
     Route: 048
     Dates: start: 20080808
  5. LYRICA [Suspect]
     Indication: FIBROMYALGIA
     Dosage: 150 MG; DAILY;
     Dates: start: 20070516
  6. AMITRIPTYLINE HCL [Suspect]
     Dosage: 10 MG; DAILY;
     Dates: start: 20080813
  7. CYMBALTA [Concomitant]
  8. ULTRACET [Concomitant]
  9. TYLENOL (CAPLET) [Concomitant]

REACTIONS (5)
  - DRUG INTERACTION [None]
  - LEUKOCYTOSIS [None]
  - MULTIPLE SCLEROSIS [None]
  - NERVOUS SYSTEM DISORDER [None]
  - PARALYSIS [None]
